FAERS Safety Report 4597433-X (Version None)
Quarter: 2005Q1

REPORT INFORMATION
  Report Type: 
  Country: None (occurrence: None)
  Receive Date: 20050303
  Receipt Date: 20050224
  Transmission Date: 20050727
  Serious: Yes (Other)
  Sender: FDA-Public Use
  Company Number: GB-JNJFOC-20050206355

PATIENT
  Age: 71 Year
  Sex: Female
  Weight: 68 kg

DRUGS (5)
  1. TRAMACET [Suspect]
     Indication: ARTHRITIS
     Route: 049
  2. VOLTAROL [Concomitant]
     Indication: PAIN
     Route: 049
  3. SIMVASTATIN [Concomitant]
     Indication: BLOOD CHOLESTEROL
     Route: 049
  4. LISINOPRIL [Concomitant]
     Indication: HYPERTENSION
     Route: 049
  5. METFORMIN [Concomitant]
     Indication: DIABETES MELLITUS
     Route: 049

REACTIONS (8)
  - CONFUSIONAL STATE [None]
  - DIZZINESS [None]
  - DRY MOUTH [None]
  - FATIGUE [None]
  - FEELING HOT [None]
  - HALLUCINATION [None]
  - NAUSEA [None]
  - SPEECH DISORDER [None]
